FAERS Safety Report 11322316 (Version 1)
Quarter: 2015Q3

REPORT INFORMATION
  Report Type: Spontaneous
  Country: US (occurrence: None)
  Receive Date: 20150626
  Receipt Date: 20150626
  Transmission Date: 20151125
  Serious: No
  Sender: FDA-Public Use
  Company Number: 1000077100

PATIENT
  Age: 38 Year
  Sex: Female

DRUGS (1)
  1. LINZESS [Suspect]
     Active Substance: LINACLOTIDE
     Indication: CONSTIPATION
     Dosage: 145 MCG (145 MCG, 1 IN 1 D)
     Dates: start: 201504

REACTIONS (2)
  - Drug ineffective [None]
  - Cholecystitis [None]

NARRATIVE: CASE EVENT DATE: 20150521
